FAERS Safety Report 6305607-2 (Version None)
Quarter: 2009Q3

REPORT INFORMATION
  Report Type: 
  Country: None (occurrence: None)
  Receive Date: 20090811
  Receipt Date: 20090806
  Transmission Date: 20100115
  Serious: Yes (Other)
  Sender: FDA-Public Use
  Company Number: DE-GILEAD-2009-0023158

PATIENT
  Age: 32 Year
  Sex: Female

DRUGS (2)
  1. TRUVADA [Suspect]
     Indication: HIV INFECTION
     Route: 048
  2. KALETRA [Concomitant]
     Route: 048

REACTIONS (1)
  - PREMATURE LABOUR [None]
